FAERS Safety Report 7935380-3 (Version None)
Quarter: 2011Q4

REPORT INFORMATION
  Report Type: 
  Country: None (occurrence: None)
  Receive Date: 20111122
  Receipt Date: 20111116
  Transmission Date: 20120403
  Serious: Yes (Hospitalization)
  Sender: FDA-Public Use
  Company Number: AU-B.I. PHARMACEUTICALS,INC./RIDGEFIELD-2011-AU-01989AU

PATIENT
  Sex: Male
  Weight: 76 kg

DRUGS (9)
  1. PRADAXA [Suspect]
     Indication: ATRIAL FIBRILLATION
     Dosage: 220 MG
     Dates: start: 20111015, end: 20111021
  2. LASIX [Concomitant]
     Dosage: 40 MG
  3. BICOR [Concomitant]
     Dosage: 5 MG
  4. DIAMICRON MR [Concomitant]
     Dosage: 60 MG
  5. CORDARONE [Concomitant]
     Dosage: 400 MG
  6. KARVEA [Concomitant]
     Dosage: 150 MG
  7. SPAN K [Concomitant]
  8. TEMAZEPAM [Concomitant]
     Dosage: 10 MG
  9. METFORMIN HCL [Concomitant]
     Dosage: 4000 MG

REACTIONS (3)
  - RECTAL HAEMORRHAGE [None]
  - ANAEMIA [None]
  - HAEMORRHOIDS [None]
